FAERS Safety Report 7304594-8 (Version None)
Quarter: 2011Q1

REPORT INFORMATION
  Report Type: 
  Country: None (occurrence: None)
  Receive Date: 20110222
  Receipt Date: 20110208
  Transmission Date: 20110831
  Serious: No
  Sender: FDA-Public Use
  Company Number: US-BIOGENIDEC-2010BI011082

PATIENT
  Sex: Female

DRUGS (1)
  1. TYSABRI [Suspect]
     Indication: MULTIPLE SCLEROSIS
     Route: 042
     Dates: start: 20090722, end: 20091130

REACTIONS (11)
  - TREMOR [None]
  - DRUG INEFFECTIVE [None]
  - INFLUENZA LIKE ILLNESS [None]
  - GENERAL SYMPTOM [None]
  - CHILLS [None]
  - SLEEP APNOEA SYNDROME [None]
  - FEELING COLD [None]
  - DRY MOUTH [None]
  - ASTHENIA [None]
  - NAUSEA [None]
  - FATIGUE [None]
